FAERS Safety Report 5956647-4 (Version None)
Quarter: 2008Q4

REPORT INFORMATION
  Report Type: 
  Country: None (occurrence: None)
  Receive Date: 20081118
  Receipt Date: 20081110
  Transmission Date: 20090506
  Serious: Yes (Hospitalization)
  Sender: FDA-Public Use
  Company Number: US-BAYER-200817510NA

PATIENT
  Age: 60 Year
  Sex: Female
  Weight: 71 kg

DRUGS (23)
  1. SORAFENIB [Suspect]
     Indication: DRUG USE FOR UNKNOWN INDICATION
     Route: 048
     Dates: start: 20070809
  2. SORAFENIB [Suspect]
     Dosage: TOTAL DAILY DOSE: 400 MG  UNIT DOSE: 200 MG
     Route: 048
     Dates: start: 20070814
  3. PROCRIT [Concomitant]
     Indication: ANAEMIA OF MALIGNANT DISEASE
     Dosage: AS USED: 80000 IU
     Route: 058
     Dates: start: 20071113
  4. PROCRIT [Concomitant]
     Dosage: AS USED: 60000 IU
     Route: 058
     Dates: start: 20080205
  5. OXYCODONE HCL [Concomitant]
     Dosage: TOTAL DAILY DOSE: 80 MG
     Route: 048
     Dates: start: 20080114
  6. OXYCODONE HCL [Concomitant]
     Dosage: AS USED: 5 MG
     Route: 048
     Dates: start: 20071218
  7. ACETAMINOPHEN [Concomitant]
     Indication: HEADACHE
     Dosage: TOTAL DAILY DOSE: 650 MG
     Route: 048
     Dates: start: 20070821
  8. ACETAMINOPHEN [Concomitant]
     Dosage: TOTAL DAILY DOSE: 325 MG
     Route: 048
     Dates: start: 20070814
  9. DIPHENHYDRAMINE HYDROCHLORIDE [Concomitant]
     Dosage: TOTAL DAILY DOSE: 50 MG
     Route: 058
     Dates: start: 20070814
  10. PETHIDINE HYDROCHLORIDE [Concomitant]
  11. PREGABALIN [Concomitant]
  12. ZOLPIDEM TARTRATE [Concomitant]
     Dates: start: 20071009
  13. NEUPOGEN [Concomitant]
     Route: 030
     Dates: start: 20070809
  14. DIPHENHYDRAMINE HCL [Concomitant]
     Dosage: TOTAL DAILY DOSE: 25 MG
     Route: 048
     Dates: start: 20070821
  15. GABAPENTIN [Concomitant]
     Route: 048
     Dates: start: 20071026
  16. LEVOTHYROXINE SODIUM [Concomitant]
     Dosage: TOTAL DAILY DOSE: 150 ?G
     Route: 048
  17. PACLITAXEL [Concomitant]
     Dates: start: 20070809
  18. PROPACET 100 [Concomitant]
     Dosage: AS USED: 100 MG
     Route: 048
     Dates: start: 20070417
  19. ESCITALOPRAM OXALATE [Concomitant]
  20. LORAZEPAM [Concomitant]
     Route: 048
     Dates: start: 20071106
  21. LEXAPRO [Concomitant]
     Route: 048
     Dates: start: 20071106
  22. LYRICA [Concomitant]
     Dosage: TOTAL DAILY DOSE: 150 MG
     Route: 048
     Dates: start: 20071206
  23. PREDNISONE TAB [Concomitant]
     Route: 048
     Dates: start: 20080114

REACTIONS (2)
  - DIVERTICULITIS [None]
  - LARGE INTESTINE PERFORATION [None]
